FAERS Safety Report 5709836-8 (Version None)
Quarter: 2008Q2

REPORT INFORMATION
  Report Type: 
  Country: None (occurrence: None)
  Receive Date: 20080418
  Receipt Date: 20070222
  Transmission Date: 20081010
  Serious: No
  Sender: FDA-Public Use
  Company Number: US-ASTRAZENECA-2007UW03486

PATIENT
  Age: 47 Year
  Sex: Female
  Weight: 108 kg

DRUGS (2)
  1. TOPROL-XL [Suspect]
     Indication: HYPERTENSION
     Route: 048
     Dates: start: 20070201
  2. DARVOCET [Concomitant]

REACTIONS (3)
  - COUGH [None]
  - DIARRHOEA [None]
  - GASTROENTERITIS VIRAL [None]
